FAERS Safety Report 5524487-6 (Version None)
Quarter: 2007Q4

REPORT INFORMATION
  Report Type: 
  Country: None (occurrence: None)
  Receive Date: 20071122
  Receipt Date: 20071115
  Transmission Date: 20080405
  Serious: Yes (Other)
  Sender: FDA-Public Use
  Company Number: PHNR2007AU01979

PATIENT
  Age: 43 Year
  Sex: Female

DRUGS (2)
  1. ZOMETA [Suspect]
     Indication: METASTASES TO BONE
     Dosage: EVERY 4 WEEKS
     Route: 042
     Dates: start: 20050401, end: 20071005
  2. HERCEPTIN [Concomitant]
     Dosage: 6 MG/KG, TIW
     Dates: start: 20061101

REACTIONS (7)
  - BREATH ODOUR [None]
  - DYSGEUSIA [None]
  - EAR PAIN [None]
  - OSTEONECROSIS [None]
  - PAIN IN JAW [None]
  - SWELLING FACE [None]
  - X-RAY ABNORMAL [None]
